FAERS Safety Report 16707805 (Version 41)
Quarter: 2025Q1

REPORT INFORMATION
  Report Type: Spontaneous
  Country: US (occurrence: US)
  Receive Date: 20190815
  Receipt Date: 20250317
  Transmission Date: 20250409
  Serious: Yes (Hospitalization, Other)
  Sender: PFIZER
  Company Number: US-PFIZER INC-2018360182

PATIENT
  Age: 66 Year
  Sex: Male

DRUGS (20)
  1. TIKOSYN [Suspect]
     Active Substance: DOFETILIDE
     Indication: Anticoagulant therapy
     Dosage: 500 UG, 2X/DAY
     Route: 048
  2. TIKOSYN [Suspect]
     Active Substance: DOFETILIDE
     Indication: Atrial fibrillation
     Dosage: 500 UG, 2X/DAY
     Route: 048
     Dates: start: 201705
  3. TIKOSYN [Suspect]
     Active Substance: DOFETILIDE
     Dosage: 375 UG, 2X/DAY
     Route: 048
     Dates: start: 2018
  4. TIKOSYN [Suspect]
     Active Substance: DOFETILIDE
     Dosage: 375 UG, 2X/DAY
     Dates: start: 20190724
  5. TIKOSYN [Suspect]
     Active Substance: DOFETILIDE
     Dosage: 1 CAPSULE IN MORNING+1 CAPSULE BEFORE BEDTIME
     Route: 048
  6. TIKOSYN [Suspect]
     Active Substance: DOFETILIDE
     Dosage: 1 CAPSULE IN MORNING+1 CAPSULE BEFORE BEDTIME
     Route: 048
  7. TIKOSYN [Suspect]
     Active Substance: DOFETILIDE
     Dosage: 1 250 UG CAPSULE+1 125 UG CAPSULE
  8. TIKOSYN [Suspect]
     Active Substance: DOFETILIDE
  9. TIKOSYN [Suspect]
     Active Substance: DOFETILIDE
  10. TIKOSYN [Suspect]
     Active Substance: DOFETILIDE
     Dosage: 250 UG, 2X/DAY (125 MCG, TAKE TWO CAPSULES TWO TIMES DAILY)
     Route: 048
  11. TIKOSYN [Suspect]
     Active Substance: DOFETILIDE
     Dosage: 375 UG, 2X/DAY (125 MCG CAPSULE TAKE THREE CAPSULES PO TWO TIMES DAILY)
     Route: 048
  12. SYNTHROID [Concomitant]
     Active Substance: LEVOTHYROXINE SODIUM
     Indication: Thyroid disorder
     Dosage: 175 UG, 1X/DAY
     Route: 048
  13. SYNTHROID [Concomitant]
     Active Substance: LEVOTHYROXINE SODIUM
     Indication: Cardiac failure
     Dosage: 175 MG, 1X/DAY
     Dates: start: 2016
  14. SYNTHROID [Concomitant]
     Active Substance: LEVOTHYROXINE SODIUM
     Indication: Atrial fibrillation
  15. COREG [Concomitant]
     Active Substance: CARVEDILOL
     Indication: Atrial fibrillation
  16. COREG [Concomitant]
     Active Substance: CARVEDILOL
     Indication: Cardiac failure
  17. WARFARIN [Concomitant]
     Active Substance: WARFARIN
     Indication: Cardiac failure
     Dosage: 2.5 MG, 2X/DAY
     Dates: start: 201604
  18. WARFARIN [Concomitant]
     Active Substance: WARFARIN
     Indication: Atrial fibrillation
  19. WARFARIN [Concomitant]
     Active Substance: WARFARIN
     Indication: Anticoagulant therapy
  20. CARVEDILOL [Concomitant]
     Active Substance: CARVEDILOL
     Indication: Blood pressure abnormal
     Dosage: 3.125 MG, 2X/DAY
     Dates: start: 20190724

REACTIONS (10)
  - Electrocardiogram QT prolonged [Recovered/Resolved]
  - Weight decreased [Not Recovered/Not Resolved]
  - Drug dependence [Unknown]
  - Lactose intolerance [Unknown]
  - Speech disorder developmental [Unknown]
  - Off label use [Unknown]
  - Product use issue [Unknown]
  - Product dispensing error [Unknown]
  - Product prescribing error [Unknown]
  - Overdose [Unknown]

NARRATIVE: CASE EVENT DATE: 20160401
